FAERS Safety Report 18901268 (Version 2)
Quarter: 2021Q1

REPORT INFORMATION
  Report Type: Spontaneous
  Country: JP (occurrence: JP)
  Receive Date: 20210216
  Receipt Date: 20210226
  Transmission Date: 20210420
  Serious: Yes (Death)
  Sender: FDA-Public Use
  Company Number: JP-ABBVIE-19K-087-3187211-00

PATIENT
  Age: 63 Year
  Sex: Female

DRUGS (2)
  1. DUODOPA [Suspect]
     Active Substance: CARBIDOPA\LEVODOPA
  2. DUODOPA [Suspect]
     Active Substance: CARBIDOPA\LEVODOPA
     Indication: PARKINSON^S DISEASE
     Route: 050
     Dates: start: 20190716, end: 20210214

REACTIONS (6)
  - Death [Fatal]
  - Abdominal pain upper [Unknown]
  - Device occlusion [Unknown]
  - Dyslalia [Unknown]
  - Abdominal pain [Unknown]
  - Device alarm issue [Unknown]

NARRATIVE: CASE EVENT DATE: 20210215
